FAERS Safety Report 14567333 (Version 6)
Quarter: 2018Q2

REPORT INFORMATION
  Report Type: Spontaneous
  Country: ES (occurrence: ES)
  Receive Date: 20180223
  Receipt Date: 20180601
  Transmission Date: 20180711
  Serious: Yes (Death)
  Sender: FDA-Public Use
  Company Number: ES-ABBVIE-18S-144-2266954-00

PATIENT
  Age: 29 Year
  Sex: Female
  Weight: 89 kg

DRUGS (7)
  1. PANTOPRAZOLE [Concomitant]
     Active Substance: PANTOPRAZOLE
     Indication: PRODUCT USED FOR UNKNOWN INDICATION
     Dosage: UNK
     Route: 065
  2. SEVOFLURANE. [Suspect]
     Active Substance: SEVOFLURANE
     Indication: GENERAL ANAESTHESIA
     Dosage: 1,5 CAM?SEVOFLURANO PIRAMAL 100 % L?QUIDO PARA INHALACI?N DEL VAPOR EFG
     Route: 055
     Dates: start: 20180125, end: 20180125
  3. SINTROM [Concomitant]
     Active Substance: ACENOCOUMAROL
     Indication: CARDIAC VALVE DISEASE
     Dosage: UNK
     Route: 065
  4. EUTIROX [Concomitant]
     Active Substance: LEVOTHYROXINE SODIUM
     Indication: PRODUCT USED FOR UNKNOWN INDICATION
     Dosage: UNK
     Route: 065
  5. ACFOL [Concomitant]
     Active Substance: FOLIC ACID
     Indication: PRODUCT USED FOR UNKNOWN INDICATION
     Dosage: UNK
     Route: 065
  6. SEVOFLURANE. [Suspect]
     Active Substance: SEVOFLURANE
     Indication: CATARACT OPERATION
  7. FERBISOL [Concomitant]
     Indication: PRODUCT USED FOR UNKNOWN INDICATION
     Dosage: UNK
     Route: 065

REACTIONS (1)
  - Cardio-respiratory arrest [Fatal]

NARRATIVE: CASE EVENT DATE: 20180128
